FAERS Safety Report 7678117-8 (Version None)
Quarter: 2011Q3

REPORT INFORMATION
  Report Type: 
  Country: None (occurrence: None)
  Receive Date: 20110811
  Receipt Date: 20110810
  Transmission Date: 20111222
  Serious: Yes (Death, Hospitalization, Other)
  Sender: FDA-Public Use
  Company Number: JP-B.I. PHARMACEUTICALS,INC./RIDGEFIELD-2011-BP-17458NB

PATIENT
  Sex: Male

DRUGS (10)
  1. BIOFERMIN [Concomitant]
     Dosage: 3 G
     Route: 048
  2. HOKUNALIN:TAPE [Concomitant]
     Dosage: 2 MG
     Route: 062
  3. KAYTWO N [Concomitant]
     Indication: HYPERCOAGULATION
     Dosage: 10 MG
     Route: 042
     Dates: start: 20110707, end: 20110707
  4. LACTEC [Concomitant]
     Indication: DEHYDRATION
     Dosage: 500 ML
     Route: 042
     Dates: start: 20110707, end: 20110707
  5. VITAMEDIN [Concomitant]
     Indication: NUTRITIONAL SUPPORT
     Route: 042
     Dates: start: 20110708, end: 20110708
  6. PICILLIBACTA [Concomitant]
     Dosage: 1.5 G
     Route: 042
     Dates: start: 20110707, end: 20110708
  7. CEFAZOLIN SODIUM [Concomitant]
     Route: 048
     Dates: start: 20110707
  8. NEOPHYLLIN INJECTION [Concomitant]
     Indication: ASTHMA
     Dosage: 125 MG
     Route: 042
     Dates: start: 20110708, end: 20110708
  9. METHYLPREDNISOLONE SODIUM SUCCINATE [Concomitant]
     Indication: ASTHMA
     Dosage: 80 MG
     Route: 042
     Dates: start: 20110708, end: 20110708
  10. PRADAXA [Suspect]
     Indication: ATRIAL FIBRILLATION
     Dosage: 220 MG
     Route: 048
     Dates: start: 20110601, end: 20110706

REACTIONS (5)
  - ACUTE RESPIRATORY FAILURE [None]
  - PYREXIA [None]
  - PLEURAL EFFUSION [None]
  - ACTIVATED PARTIAL THROMBOPLASTIN TIME PROLONGED [None]
  - INTERNATIONAL NORMALISED RATIO INCREASED [None]
